FAERS Safety Report 9168866 (Version 1)
Quarter: 2013Q1

REPORT INFORMATION
  Report Type: Spontaneous
  Country: AU (occurrence: None)
  Receive Date: 20130307
  Receipt Date: 20130307
  Transmission Date: 20140127
  Serious: Yes (Hospitalization)
  Sender: FDA-Public Use
  Company Number: SYM-2013-01350

PATIENT
  Age: 88 Year
  Sex: Female

DRUGS (15)
  1. CARDIZEM [Suspect]
     Indication: PRODUCT USED FOR UNKNOWN INDICATION
  2. PANAMAX [Suspect]
     Indication: PRODUCT USED FOR UNKNOWN INDICATION
  3. LASIX [Suspect]
     Indication: PRODUCT USED FOR UNKNOWN INDICATION
  4. CARVEDILOL HYDROCHLORIDE [Concomitant]
     Indication: PRODUCT USED FOR UNKNOWN INDICATION
  5. ENDONE [Suspect]
     Indication: PRODUCT USED FOR UNKNOWN INDICATION
  6. IMDUR [Suspect]
     Indication: PRODUCT USED FOR UNKNOWN INDICATION
  7. ATORVASTATIN [Suspect]
     Indication: PRODUCT USED FOR UNKNOWN INDICATION
  8. GLYCERYL TRINITRATE [Suspect]
     Indication: PRODUCT USED FOR UNKNOWN INDICATION
  9. NORSPAN [Suspect]
     Indication: PRODUCT USED FOR UNKNOWN INDICATION
  10. PANAFCORT [Suspect]
     Indication: PRODUCT USED FOR UNKNOWN INDICATION
  11. PRADAXA [Suspect]
     Indication: PRODUCT USED FOR UNKNOWN INDICATION
  12. PRANTAL [Suspect]
     Indication: PRODUCT USED FOR UNKNOWN INDICATION
  13. SENNA [Suspect]
     Indication: PRODUCT USED FOR UNKNOWN INDICATION
  14. CHOLECALCIFEROL [Suspect]
     Indication: PRODUCT USED FOR UNKNOWN INDICATION
  15. NORSPAN [Suspect]
     Indication: PRODUCT USED FOR UNKNOWN INDICATION

REACTIONS (7)
  - Hyperkalaemia [None]
  - Urinary tract infection [None]
  - Renal failure acute [None]
  - Metrorrhagia [None]
  - Nausea [None]
  - Body temperature decreased [None]
  - Atrial flutter [None]
